FAERS Safety Report 20331053 (Version 1)
Quarter: 2022Q1

REPORT INFORMATION
  Report Type: Spontaneous
  Country: US (occurrence: None)
  Receive Date: 20220112
  Receipt Date: 20220112
  Transmission Date: 20220424
  Serious: Yes (Hospitalization)
  Sender: FDA-Public Use
  Company Number: None

PATIENT
  Age: 44 Year
  Sex: Female

DRUGS (1)
  1. AMBRISENTAN [Suspect]
     Active Substance: AMBRISENTAN
     Indication: Pulmonary arterial hypertension
     Dosage: FREQUENCY : DAILY;?
     Route: 048
     Dates: start: 20190131

REACTIONS (8)
  - Cardiac failure congestive [None]
  - Product dose omission issue [None]
  - Product availability issue [None]
  - Cough [None]
  - Sinus tachycardia [None]
  - Hypokalaemia [None]
  - Leukocytosis [None]
  - Treatment noncompliance [None]

NARRATIVE: CASE EVENT DATE: 20211220
